FAERS Safety Report 8816352 (Version 1)
Quarter: 2012Q4

REPORT INFORMATION
  Report Type: Spontaneous
  Country: US (occurrence: None)
  Receive Date: 20120928
  Receipt Date: 20120928
  Transmission Date: 20130627
  Serious: Yes (Other)
  Sender: FDA-Public Use
  Company Number: None

PATIENT
  Age: 62 Year
  Sex: Female
  Weight: 63.05 kg

DRUGS (2)
  1. CLOPIDOGREL [Suspect]
     Dosage: 75mg Q.D. P.O.
     Route: 048
     Dates: start: 20120501
  2. CLOPIDOGREL [Suspect]
     Dates: start: 20120817

REACTIONS (3)
  - Nausea [None]
  - Vomiting [None]
  - Product substitution issue [None]
